FAERS Safety Report 15097969 (Version 1)
Quarter: 2018Q3

REPORT INFORMATION
  Report Type: Spontaneous
  Country: US (occurrence: US)
  Receive Date: 20180702
  Receipt Date: 20180702
  Transmission Date: 20181010
  Serious: No
  Sender: FDA-Public Use
  Company Number: US-009507513-1806USA009392

PATIENT
  Sex: Female

DRUGS (1)
  1. GANIRELIX ACETATE INJECTION [Suspect]
     Active Substance: GANIRELIX ACETATE
     Dosage: UNK UNK, UNKNOWN

REACTIONS (4)
  - Product quality issue [Unknown]
  - Needle issue [Unknown]
  - No adverse event [Unknown]
  - Injury associated with device [Unknown]

NARRATIVE: CASE EVENT DATE: 20180618
